FAERS Safety Report 6000291-X (Version None)
Quarter: 2008Q4

REPORT INFORMATION
  Report Type: 
  Country: None (occurrence: None)
  Receive Date: 20081211
  Receipt Date: 20081211
  Transmission Date: 20090506
  Serious: No
  Sender: FDA-Public Use
  Company Number: None

PATIENT
  Sex: Male
  Weight: 106.5953 kg

DRUGS (1)
  1. NIFEDIPINE [Suspect]
     Indication: PRINZMETAL ANGINA
     Dosage: 90 MG DAILY PO
     Route: 048
     Dates: start: 20081207, end: 20081208

REACTIONS (1)
  - HEADACHE [None]
